FAERS Safety Report 13112886 (Version 1)
Quarter: 2017Q1

REPORT INFORMATION
  Report Type: Spontaneous
  Country: US (occurrence: US)
  Receive Date: 20170112
  Receipt Date: 20170112
  Transmission Date: 20170428
  Serious: Yes (Other)
  Sender: FDA-Public Use
  Company Number: None

PATIENT
  Age: 47 Year
  Sex: Female

DRUGS (1)
  1. KYNAMRO [Suspect]
     Active Substance: MIPOMERSEN SODIUM
     Indication: TYPE IIA HYPERLIPIDAEMIA
     Route: 058
     Dates: start: 20161011

REACTIONS (8)
  - Headache [None]
  - Injection site reaction [None]
  - Vomiting [None]
  - Injection site pain [None]
  - Hypoaesthesia [None]
  - Post procedural complication [None]
  - Muscle tightness [None]
  - Nausea [None]

NARRATIVE: CASE EVENT DATE: 20161101
